FAERS Safety Report 22191578 (Version 2)
Quarter: 2023Q4

REPORT INFORMATION
  Report Type: Spontaneous
  Country: US (occurrence: US)
  Receive Date: 20230410
  Receipt Date: 20231113
  Transmission Date: 20240110
  Serious: No
  Sender: FDA-Public Use
  Company Number: US-SA-SAC20230406000940

PATIENT
  Age: 22 Year
  Sex: Male
  Weight: 68 kg

DRUGS (5)
  1. DUPIXENT [Suspect]
     Active Substance: DUPILUMAB
     Indication: Dermatitis atopic
     Dosage: 600 MG, 1X
     Route: 058
     Dates: start: 20230322, end: 20230322
  2. DUPIXENT [Suspect]
     Active Substance: DUPILUMAB
     Dosage: 300 MG, QOW
     Route: 058
     Dates: start: 2023
  3. TACROLIMUS [Concomitant]
     Active Substance: TACROLIMUS
     Dosage: UNK
  4. CLOBETASOL [Concomitant]
     Active Substance: CLOBETASOL
     Dosage: UNK
  5. TRIAMCINOLONE ACETONIDE [Concomitant]
     Active Substance: TRIAMCINOLONE ACETONIDE
     Dosage: UNK

REACTIONS (3)
  - Pruritus [Unknown]
  - Pruritus [Recovering/Resolving]
  - Eye pruritus [Unknown]

NARRATIVE: CASE EVENT DATE: 20230101
